FAERS Safety Report 14326407 (Version 1)
Quarter: 2017Q4

REPORT INFORMATION
  Report Type: Spontaneous
  Country: US (occurrence: US)
  Receive Date: 20171226
  Receipt Date: 20171226
  Transmission Date: 20180321
  Serious: Yes (Disabling)
  Sender: FDA-Public Use
  Company Number: None

PATIENT
  Sex: Female

DRUGS (1)
  1. DELSYM (DEXTROMETHORPHAN) [Suspect]
     Active Substance: DEXTROMETHORPHAN
     Indication: COUGH
     Dosage: 1 TEASPOON TWICE A DAY ORAL
     Route: 048
     Dates: start: 20171224, end: 20171225

REACTIONS (5)
  - Restlessness [None]
  - Asthenopia [None]
  - Eyelid function disorder [None]
  - Malaise [None]
  - Lip dry [None]

NARRATIVE: CASE EVENT DATE: 20171225
